FAERS Safety Report 8583375-1 (Version None)
Quarter: 2012Q3

REPORT INFORMATION
  Report Type: 
  Country: None (occurrence: None)
  Receive Date: 20120809
  Receipt Date: 20120808
  Transmission Date: 20120928
  Serious: Yes (Death, Hospitalization)
  Sender: FDA-Public Use
  Company Number: US-ROCHE-1099208

PATIENT
  Age: 70 Year

DRUGS (4)
  1. BENDAMUSTINE HYDROCHLORIDE [Suspect]
     Indication: LYMPHOMA
     Dates: start: 20120514
  2. BENDAMUSTINE HYDROCHLORIDE [Suspect]
     Dates: start: 20120515
  3. RITUXAN [Suspect]
     Dosage: SPLITTED DOSE.
     Dates: start: 20120515
  4. RITUXAN [Suspect]
     Indication: LYMPHOMA
     Dates: start: 20120514

REACTIONS (3)
  - DEATH [None]
  - HISTIOCYTOSIS HAEMATOPHAGIC [None]
  - CHILLS [None]
